FAERS Safety Report 16748836 (Version 3)
Quarter: 2020Q1

REPORT INFORMATION
  Report Type: Spontaneous
  Country: DE (occurrence: DE)
  Receive Date: 20190828
  Receipt Date: 20200212
  Transmission Date: 20200409
  Serious: Yes (Other)
  Sender: FDA-Public Use
  Company Number: DE-AUROBINDO-AUR-APL-2019-045026

PATIENT
  Sex: Female
  Weight: 49 kg

DRUGS (3)
  1. LETROZOLE. [Suspect]
     Active Substance: LETROZOLE
     Indication: BREAST CANCER METASTATIC
     Dosage: 2.5 MG, QD
     Route: 048
     Dates: start: 20190318
  2. KISQALI [Suspect]
     Active Substance: RIBOCICLIB
     Dosage: 400 MILLIGRAM, ONCE A DAY,QD (21 DAYS INTAKE, 7 DAYS PAUSE)
     Route: 048
     Dates: start: 20191023
  3. KISQALI [Suspect]
     Active Substance: RIBOCICLIB
     Indication: BREAST CANCER METASTATIC
     Dosage: 600 MG, QD (SCHEME 21 DAYS INTAKE, 7 DAYS PAUSE)
     Route: 048
     Dates: start: 20190318, end: 20190708

REACTIONS (3)
  - Blood calcium decreased [Recovered/Resolved]
  - Liver function test increased [Recovering/Resolving]
  - Pleural effusion [Recovered/Resolved]

NARRATIVE: CASE EVENT DATE: 20190403
